FAERS Safety Report 9412646 (Version 1)
Quarter: 2013Q2

REPORT INFORMATION
  Report Type: Spontaneous
  Country: US (occurrence: None)
  Receive Date: 20130618
  Receipt Date: 20130618
  Transmission Date: 20140414
  Serious: Yes (Hospitalization)
  Sender: FDA-Public Use
  Company Number: 54973 AE # 1387

PATIENT
  Age: 4 Month
  Sex: Female

DRUGS (2)
  1. HYLAND^S TEETHING GEL [Suspect]
     Indication: TEETHING
     Dosage: SWABS GUM Q 1 - 2 X 1 DAY
  2. TYLENOL [Suspect]

REACTIONS (2)
  - Pyrexia [None]
  - Hyperhidrosis [None]
